FAERS Safety Report 8115338-4 (Version None)
Quarter: 2012Q1

REPORT INFORMATION
  Report Type: 
  Country: None (occurrence: None)
  Receive Date: 20120206
  Receipt Date: 20120206
  Transmission Date: 20120608
  Serious: Yes (Hospitalization)
  Sender: FDA-Public Use
  Company Number: None

PATIENT
  Age: 81 Year
  Sex: Male
  Weight: 65.8 kg

DRUGS (6)
  1. DABIGATRAN [Suspect]
     Indication: ATRIAL FIBRILLATION
     Dosage: 150 MG
     Route: 048
     Dates: start: 20110815, end: 20110822
  2. ALLOPURINOL [Concomitant]
     Route: 048
  3. VITAMIN E [Concomitant]
     Route: 048
  4. VERAPAMIL [Concomitant]
     Route: 048
  5. VITAMIN D2 [Concomitant]
     Route: 048
  6. CYANOCOBALAMIN [Concomitant]
     Route: 048

REACTIONS (2)
  - HAEMOGLOBIN DECREASED [None]
  - GASTROINTESTINAL HAEMORRHAGE [None]
